FAERS Safety Report 16624254 (Version 1)
Quarter: 2019Q3

REPORT INFORMATION
  Report Type: Spontaneous
  Country: ES (occurrence: ES)
  Receive Date: 20190724
  Receipt Date: 20190724
  Transmission Date: 20191004
  Serious: Yes (Death)
  Sender: FDA-Public Use
  Company Number: ES-SUN PHARMACEUTICAL INDUSTRIES LTD-2019RR-214774

PATIENT
  Age: 90 Year
  Sex: Female

DRUGS (2)
  1. METOTREXATO (418A) [Interacting]
     Active Substance: METHOTREXATE
     Indication: PSORIATIC ARTHROPATHY
     Dosage: 10 MG SEMANALES ()
     Route: 030
     Dates: start: 2016, end: 20190601
  2. CIPROFLOXACIN. [Suspect]
     Active Substance: CIPROFLOXACIN
     Indication: WOUND INFECTION
     Dosage: 250 MG CADA 12 HORAS POR 7 DIAS ()
     Route: 048
     Dates: start: 201905, end: 201905

REACTIONS (1)
  - Bone marrow failure [Fatal]

NARRATIVE: CASE EVENT DATE: 20190601
